FAERS Safety Report 6142285-X (Version None)
Quarter: 2009Q2

REPORT INFORMATION
  Report Type: 
  Country: None (occurrence: None)
  Receive Date: 20090402
  Receipt Date: 20090402
  Transmission Date: 20091009
  Serious: No
  Sender: FDA-Public Use
  Company Number: None

PATIENT
  Age: 22 Year
  Sex: Male
  Weight: 104.7809 kg

DRUGS (2)
  1. CITALOPRAM HYDROBROMIDE [Suspect]
     Indication: DEPRESSION
     Dosage: 20 MG 3 TABS DAILY ORAL
     Route: 048
     Dates: start: 20080701
  2. CITALOPRAM HYDROBROMIDE [Suspect]
     Indication: PERSONALITY DISORDER
     Dosage: 20 MG 3 TABS DAILY ORAL
     Route: 048
     Dates: start: 20080701

REACTIONS (2)
  - PRODUCT QUALITY ISSUE [None]
  - TREMOR [None]
